FAERS Safety Report 7506953-7 (Version None)
Quarter: 2011Q2

REPORT INFORMATION
  Report Type: 
  Country: None (occurrence: None)
  Receive Date: 20110418
  Receipt Date: 20100527
  Transmission Date: 20111010
  Serious: Yes (Other)
  Sender: FDA-Public Use
  Company Number: 10-199

PATIENT
  Age: 52 Year
  Sex: Female

DRUGS (3)
  1. NAPROXEN (ALEVE) [Suspect]
     Indication: ARTHRITIS
     Dosage: 1500 MG, DAILY, ORAL, PRIOR TO 5/21/10; 440 MG, DAILY, ORAL
     Route: 048
  2. MIDOL EXTENDED RELIEF CAPLETS [Suspect]
     Indication: MENSTRUAL DISORDER
     Dosage: ORAL
     Route: 048
     Dates: start: 19700101
  3. TYLENOL-500 [Concomitant]

REACTIONS (4)
  - GASTRIC ULCER [None]
  - NAUSEA [None]
  - CONDITION AGGRAVATED [None]
  - MENSTRUAL DISORDER [None]
